FAERS Safety Report 11677729 (Version 1)
Quarter: 2015Q4

REPORT INFORMATION
  Report Type: Spontaneous
  Country: US (occurrence: US)
  Receive Date: 20151028
  Receipt Date: 20151028
  Transmission Date: 20160304
  Serious: Yes (Other)
  Sender: FDA-Public Use
  Company Number: US-ASTRAZENECA-2015SF02398

PATIENT
  Sex: Female
  Weight: 70.8 kg

DRUGS (1)
  1. BRILINTA [Suspect]
     Active Substance: TICAGRELOR
     Indication: THROMBOSIS PROPHYLAXIS
     Route: 048
     Dates: start: 20150130, end: 201503

REACTIONS (5)
  - Weight decreased [Unknown]
  - Hypertension [Unknown]
  - Myocardial infarction [Unknown]
  - Body height decreased [Unknown]
  - Dyspnoea [Unknown]
